FAERS Safety Report 4724413-3 (Version None)
Quarter: 2005Q3

REPORT INFORMATION
  Report Type: 
  Country: None (occurrence: None)
  Receive Date: 20050721
  Receipt Date: 20050708
  Transmission Date: 20060218
  Serious: Yes (Hospitalization)
  Sender: FDA-Public Use
  Company Number: 11759

PATIENT
  Age: 45 Year
  Sex: Male

DRUGS (4)
  1. DACARBAZINE [Suspect]
     Indication: HODGKIN'S DISEASE
     Dosage: IV
     Route: 042
     Dates: start: 20050705
  2. BLEOMYCIN [Suspect]
     Indication: HODGKIN'S DISEASE
     Dosage: IV
     Route: 042
     Dates: start: 20050705
  3. VINBLASTINE [Suspect]
     Indication: HODGKIN'S DISEASE
     Dosage: IV
     Route: 042
     Dates: start: 20050705
  4. DOXORUBICIN HYDROCHLORIDE [Suspect]
     Indication: HODGKIN'S DISEASE
     Dosage: IV
     Route: 042
     Dates: start: 20050705

REACTIONS (3)
  - PERIORBITAL OEDEMA [None]
  - PRURITUS [None]
  - RASH GENERALISED [None]
